FAERS Safety Report 9140304 (Version 2)
Quarter: 2013Q2

REPORT INFORMATION
  Report Type: Spontaneous
  Country: IT (occurrence: IT)
  Receive Date: 20130305
  Receipt Date: 20130417
  Transmission Date: 20140414
  Serious: Yes (Hospitalization)
  Sender: FDA-Public Use
  Company Number: IT-BRISTOL-MYERS SQUIBB COMPANY-17411075

PATIENT
  Age: 81 Year
  Sex: Male

DRUGS (8)
  1. COUMADIN TABS 5 MG [Suspect]
     Indication: ATRIAL FIBRILLATION
     Route: 048
     Dates: start: 20020101, end: 20130211
  2. CARDIOASPIRIN [Suspect]
     Route: 048
     Dates: start: 20020101, end: 20130219
  3. BISOPROLOL [Concomitant]
     Route: 048
  4. PRAVASELECT [Concomitant]
  5. ALDACTONE [Concomitant]
     Dosage: 1DF:1 DOSE
     Route: 048
  6. FOLINA [Concomitant]
  7. LASIX [Concomitant]
     Route: 048
  8. NEXIUM [Concomitant]
     Dosage: TAB
     Route: 048

REACTIONS (3)
  - Asthenia [Not Recovered/Not Resolved]
  - Anaemia [Not Recovered/Not Resolved]
  - Epistaxis [Not Recovered/Not Resolved]
